FAERS Safety Report 16898469 (Version 2)
Quarter: 2019Q4

REPORT INFORMATION
  Report Type: Spontaneous
  Country: US (occurrence: US)
  Receive Date: 20191009
  Receipt Date: 20191113
  Transmission Date: 20200122
  Serious: Yes (Other)
  Sender: FDA-Public Use
  Company Number: US-PFIZER INC-2019396587

PATIENT
  Age: 54 Year
  Sex: Male
  Weight: 71.66 kg

DRUGS (1)
  1. NICOTROL [Suspect]
     Active Substance: NICOTINE
     Indication: EX-TOBACCO USER
     Dosage: 10 MG, 2X/DAY
     Dates: start: 201901

REACTIONS (4)
  - Intentional product misuse [Unknown]
  - Malaise [Unknown]
  - Rib fracture [Unknown]
  - Dyspnoea [Unknown]
